FAERS Safety Report 4709495-7 (Version None)
Quarter: 2005Q3

REPORT INFORMATION
  Report Type: 
  Country: None (occurrence: None)
  Receive Date: 20050706
  Receipt Date: 20050621
  Transmission Date: 20060218
  Serious: Yes (Hospitalization, Other)
  Sender: FDA-Public Use
  Company Number: 2004-07-0651

PATIENT
  Age: 54 Year
  Sex: Female
  Weight: 53 kg

DRUGS (6)
  1. CLARITIN [Suspect]
     Indication: RHINITIS ALLERGIC
     Dosage: 10 MG ORAL
     Route: 048
     Dates: start: 20040601, end: 20040711
  2. CLARITIN [Suspect]
     Indication: SNORING
     Dosage: 10 MG ORAL
     Route: 048
     Dates: start: 20040601, end: 20040711
  3. SHINISEIHAITOH GRANULES [Suspect]
     Indication: RHINITIS ALLERGIC
     Dosage: 7.5 G ORAL
     Route: 048
     Dates: start: 20040601, end: 20040711
  4. SHINISEIHAITOH GRANULES [Suspect]
     Indication: SNORING
     Dosage: 7.5 G ORAL
     Route: 048
     Dates: start: 20040601, end: 20040711
  5. CEFMETAZOLE SODIUM INJECTABLE [Suspect]
     Indication: INTERSTITIAL LUNG DISEASE
     Dosage: INTRAVENOUS
     Route: 042
     Dates: start: 20040712, end: 20040712
  6. ............................ [Suspect]

REACTIONS (4)
  - ALANINE AMINOTRANSFERASE INCREASED [None]
  - CHEST X-RAY ABNORMAL [None]
  - INTERSTITIAL LUNG DISEASE [None]
  - RASH [None]
